FAERS Safety Report 4275365-4 (Version None)
Quarter: 2004Q1

REPORT INFORMATION
  Report Type: 
  Country: None (occurrence: None)
  Receive Date: 20040116
  Receipt Date: 20040109
  Transmission Date: 20041129
  Serious: Yes (Disabling)
  Sender: FDA-Public Use
  Company Number: TAP2003Q02367

PATIENT
  Age: 61 Year
  Sex: Male
  Weight: 95.2554 kg

DRUGS (5)
  1. PREVACID [Suspect]
     Indication: BARRETT'S OESOPHAGUS
     Dosage: 30 MG, 1 IN 1 D, PER ORAL
     Route: 048
     Dates: start: 20000915, end: 20030901
  2. MULTIVITAMIN [Concomitant]
  3. FISH OIL (FISH OIL) [Concomitant]
  4. ACETYLSALICYLIC ACID SRT [Concomitant]
  5. IRON TABLETS (IRON) [Concomitant]

REACTIONS (15)
  - ATAXIA [None]
  - BRAIN OEDEMA [None]
  - COORDINATION ABNORMAL [None]
  - DYSGRAPHIA [None]
  - FALL [None]
  - GAIT DISTURBANCE [None]
  - HYPERREFLEXIA [None]
  - INFLAMMATION [None]
  - INFLUENZA LIKE ILLNESS [None]
  - LYMPHADENOPATHY [None]
  - MALAISE [None]
  - MUSCULAR WEAKNESS [None]
  - MYALGIA [None]
  - NYSTAGMUS [None]
  - SLEEP DISORDER [None]
